FAERS Safety Report 22171782 (Version 1)
Quarter: 2023Q2

REPORT INFORMATION
  Report Type: Spontaneous
  Country: US (occurrence: US)
  Receive Date: 20230404
  Receipt Date: 20230404
  Transmission Date: 20230721
  Serious: No
  Sender: FDA-Public Use
  Company Number: US-GALDERMA-US2023003674

PATIENT

DRUGS (12)
  1. PROACTIV MD ADAPALENE ACNE TREATMENT [Suspect]
     Active Substance: ADAPALENE
     Indication: Scar
     Dosage: 1 DOSAGE FORM, QD
     Route: 061
     Dates: start: 2023, end: 2023
  2. PROACTIV MD ADAPALENE ACNE TREATMENT [Suspect]
     Active Substance: ADAPALENE
     Indication: Skin hyperpigmentation
  3. PROACTIV CLEAR SKIN SPF 30 [Concomitant]
     Active Substance: AVOBENZONE\OCTISALATE\OCTOCRYLENE
     Indication: Scar
     Dosage: 1 DOSAGE FORM, BID
     Route: 061
     Dates: start: 2023, end: 2023
  4. PROACTIV CLEAR SKIN SPF 30 [Concomitant]
     Active Substance: AVOBENZONE\OCTISALATE\OCTOCRYLENE
     Indication: Skin hyperpigmentation
  5. Proactiv MD Ultra Gentle Cleanser [Concomitant]
     Indication: Scar
     Dosage: 1 DOSAGE FORM, BID
     Route: 061
     Dates: start: 2023, end: 2023
  6. Proactiv MD Ultra Gentle Cleanser [Concomitant]
     Indication: Skin hyperpigmentation
  7. Proactiv MD Ultra Hydrating Moisturizer [Concomitant]
     Indication: Scar
     Dosage: 1 DOSAGE FORM, BID
     Route: 061
     Dates: start: 2023, end: 2023
  8. Proactiv MD Ultra Hydrating Moisturizer [Concomitant]
     Indication: Skin hyperpigmentation
  9. Proactiv Post Acne Dark Mark Relief [Concomitant]
     Indication: Scar
     Dosage: 1 DOSAGE FORM, BID
     Route: 061
     Dates: start: 2023, end: 2023
  10. Proactiv Post Acne Dark Mark Relief [Concomitant]
     Indication: Skin hyperpigmentation
  11. Proactiv Post Acne Scar Gel [Concomitant]
     Indication: Scar
     Dosage: 1 DOSAGE FORM, BID
     Route: 061
     Dates: start: 2023, end: 2023
  12. Proactiv Post Acne Scar Gel [Concomitant]
     Indication: Skin hyperpigmentation

REACTIONS (3)
  - Skin burning sensation [Not Recovered/Not Resolved]
  - Skin injury [Not Recovered/Not Resolved]
  - Product use in unapproved indication [Recovered/Resolved]

NARRATIVE: CASE EVENT DATE: 20230101
